FAERS Safety Report 5926350-5 (Version None)
Quarter: 2008Q4

REPORT INFORMATION
  Report Type: 
  Country: None (occurrence: None)
  Receive Date: 20081022
  Receipt Date: 20081016
  Transmission Date: 20090506
  Serious: Yes (Other)
  Sender: FDA-Public Use
  Company Number: US-ABBOTT-08P-163-0482253-00

PATIENT
  Sex: Male
  Weight: 93.07 kg

DRUGS (4)
  1. SIMCOR [Suspect]
     Indication: BLOOD CHOLESTEROL INCREASED
     Dosage: 500/20MG PER DAY
     Route: 048
     Dates: start: 20080601, end: 20080701
  2. SIMCOR [Suspect]
     Dosage: 500/20MG DAILY
     Dates: start: 20080731
  3. DILANTIN [Concomitant]
     Indication: BRAIN OPERATION
     Route: 048
     Dates: start: 20080701
  4. LISINOPRIL [Concomitant]
     Indication: HYPERTENSION
     Route: 048

REACTIONS (5)
  - ABDOMINAL DISCOMFORT [None]
  - BRAIN NEOPLASM [None]
  - FLUSHING [None]
  - PAIN OF SKIN [None]
  - PRURITUS [None]
